FAERS Safety Report 23077635 (Version 1)
Quarter: 2023Q4

REPORT INFORMATION
  Report Type: Spontaneous
  Country: FR (occurrence: FR)
  Receive Date: 20231018
  Receipt Date: 20231018
  Transmission Date: 20240110
  Serious: Yes (Hospitalization)
  Sender: FDA-Public Use
  Company Number: None

PATIENT
  Age: 33 Year
  Sex: Male
  Weight: 80 kg

DRUGS (2)
  1. TEGRETOL [Suspect]
     Active Substance: CARBAMAZEPINE
     Indication: Epilepsy
     Dosage: 200 MG, BID (1 FP, 200 MG 2 FOIS PAR JOUR)
     Route: 048
     Dates: start: 20230403, end: 20230915
  2. DOSTINEX [Concomitant]
     Active Substance: CABERGOLINE
     Indication: Prolactin-producing pituitary tumour
     Dosage: 0.5 MG, QW (1 FP,0.5 MG 1 FOIS PAR SEMAINE)
     Route: 048
     Dates: start: 20070101

REACTIONS (4)
  - Delusion [Recovering/Resolving]
  - Behaviour disorder [Recovering/Resolving]
  - Memory impairment [Recovering/Resolving]
  - Hallucination [Recovering/Resolving]

NARRATIVE: CASE EVENT DATE: 20230615
